FAERS Safety Report 25954180 (Version 1)
Quarter: 2025Q4

REPORT INFORMATION
  Report Type: Spontaneous
  Country: JP (occurrence: JP)
  Receive Date: 20251023
  Receipt Date: 20251023
  Transmission Date: 20260117
  Serious: Yes (Hospitalization)
  Sender: EISAI
  Company Number: JP-Eisai-202509023_LEN-RCC_P_1

PATIENT
  Age: 61 Year
  Sex: Male
  Weight: 61 kg

DRUGS (9)
  1. LENVIMA [Suspect]
     Active Substance: LENVATINIB
     Indication: Renal cell carcinoma
     Route: 048
     Dates: start: 20250814, end: 20250816
  2. KEYTRUDA [Suspect]
     Active Substance: PEMBROLIZUMAB
     Indication: Renal cell carcinoma
     Dosage: FREQUENCY UNKNOWN
     Route: 041
     Dates: start: 20250814, end: 20250814
  3. LANTHANUM CARBONATE [Concomitant]
     Active Substance: LANTHANUM CARBONATE
     Dosage: DOSE UNKNOWN
  4. POTASSIUM GLUCONATE [Concomitant]
     Active Substance: POTASSIUM GLUCONATE
     Indication: Product used for unknown indication
     Dosage: DOSE AND FREQUENCY UNKNOWN
  5. TENAPANOR HYDROCHLORIDE [Concomitant]
     Active Substance: TENAPANOR HYDROCHLORIDE
     Indication: Product used for unknown indication
     Dosage: DOSE UNKNOWN
  6. HERBALS [Concomitant]
     Active Substance: HERBALS
     Indication: Product used for unknown indication
     Dosage: DOSE UNKNOWN
  7. TSUMURA GOREISAN EXTRACT GRANULES FOR ETHICAL USE [Concomitant]
     Indication: Product used for unknown indication
     Dosage: DOSE UNKNOWN
  8. TSUMURA GOREISAN EXTRACT GRANULES FOR ETHICAL USE [Concomitant]
     Dosage: DOSE UNKNOWN
  9. AUGMENTIN [Concomitant]
     Active Substance: AMOXICILLIN\CLAVULANATE POTASSIUM
     Dosage: DOSE UNKNOWN
     Route: 048
     Dates: start: 20250814, end: 20250821

REACTIONS (1)
  - Hepatic function abnormal [Recovering/Resolving]

NARRATIVE: CASE EVENT DATE: 20250816
